FAERS Safety Report 9266961 (Version 1)
Quarter: 2013Q2

REPORT INFORMATION
  Report Type: Spontaneous
  Country: US (occurrence: US)
  Receive Date: 20130502
  Receipt Date: 20130502
  Transmission Date: 20140414
  Serious: No
  Sender: FDA-Public Use
  Company Number: US-PFIZER INC-2013132916

PATIENT
  Age: 39 Year
  Sex: Female
  Weight: 86.17 kg

DRUGS (1)
  1. LEVOXYL [Suspect]
     Indication: HYPERTHYROIDISM
     Dosage: 0.1 MG, 2X/DAY
     Route: 048
     Dates: start: 2012, end: 201304

REACTIONS (1)
  - Feeling abnormal [Not Recovered/Not Resolved]
